FAERS Safety Report 16414463 (Version 1)
Quarter: 2019Q3

REPORT INFORMATION
  Report Type: Spontaneous
  Country: US (occurrence: US)
  Receive Date: 20190610
  Receipt Date: 20190610
  Transmission Date: 20191004
  Serious: Yes (Death, Hospitalization)
  Sender: FDA-Public Use
  Company Number: None

PATIENT
  Age: 91 Year
  Sex: Female

DRUGS (12)
  1. FINASTERIDE. [Concomitant]
     Active Substance: FINASTERIDE
  2. DONEPEZIL. [Concomitant]
     Active Substance: DONEPEZIL
  3. ALLERGY MEDICATION [Concomitant]
     Active Substance: DIPHENHYDRAMINE HYDROCHLORIDE
  4. LEVOTHYROXINE. [Concomitant]
     Active Substance: LEVOTHYROXINE
  5. PROAIR HFA [Concomitant]
     Active Substance: ALBUTEROL SULFATE
  6. LASIX [Concomitant]
     Active Substance: FUROSEMIDE
  7. GUAIFENESIN. [Concomitant]
     Active Substance: GUAIFENESIN
  8. MVI [Concomitant]
     Active Substance: VITAMINS
  9. POTASSIUM HCL [Concomitant]
  10. XARELTO [Suspect]
     Active Substance: RIVAROXABAN
     Indication: ATRIAL FIBRILLATION
     Dosage: ?          QUANTITY:30 TABLET(S);?
     Route: 048
     Dates: end: 20190529
  11. XARELTO [Concomitant]
     Active Substance: RIVAROXABAN
  12. DOXAZOSIN [Concomitant]
     Active Substance: DOXAZOSIN MESYLATE

REACTIONS (7)
  - International normalised ratio decreased [None]
  - Platelet count decreased [None]
  - Pulmonary function test abnormal [None]
  - Haemoptysis [None]
  - Bronchitis [None]
  - Respiratory failure [None]
  - Pulmonary haemorrhage [None]

NARRATIVE: CASE EVENT DATE: 20190528
